FAERS Safety Report 25957885 (Version 1)
Quarter: 2025Q4

REPORT INFORMATION
  Report Type: Spontaneous
  Country: CN (occurrence: CN)
  Receive Date: 20251024
  Receipt Date: 20251024
  Transmission Date: 20260117
  Serious: Yes (Other)
  Sender: SANDOZ
  Company Number: CN-SANDOZ-SDZ2025CN078261

PATIENT
  Age: 31 Year
  Sex: Male
  Weight: 46 kg

DRUGS (1)
  1. VORICONAZOLE [Suspect]
     Active Substance: VORICONAZOLE
     Indication: Fungal infection
     Dosage: 200 MG, BID
     Route: 048
     Dates: start: 20251005, end: 20251015

REACTIONS (4)
  - Mental disorder [Unknown]
  - Insomnia [Recovering/Resolving]
  - Hallucination [Recovering/Resolving]
  - Dizziness [Recovering/Resolving]

NARRATIVE: CASE EVENT DATE: 20251006
